FAERS Safety Report 12493032 (Version 2)
Quarter: 2016Q3

REPORT INFORMATION
  Report Type: Spontaneous
  Country: JP (occurrence: JP)
  Receive Date: 20160623
  Receipt Date: 20160712
  Transmission Date: 20161109
  Serious: Yes (Hospitalization, Other)
  Sender: FDA-Public Use
  Company Number: JP-GILEAD-2016-0219093AA

PATIENT
  Age: 79 Year
  Sex: Female

DRUGS (8)
  1. HARVONI [Suspect]
     Active Substance: LEDIPASVIR\SOFOSBUVIR
     Indication: HEPATITIS C
     Dosage: 1 DF, UNK
     Route: 048
     Dates: start: 20160422
  2. CANDESARTAN [Concomitant]
     Active Substance: CANDESARTAN
  3. ETIZOLAM [Concomitant]
     Active Substance: ETIZOLAM
  4. CARVEDILOL. [Concomitant]
     Active Substance: CARVEDILOL
  5. POLAPREZINC [Concomitant]
     Active Substance: POLAPREZINC
  6. URSO [Concomitant]
     Active Substance: URSODIOL
  7. LOXONIN [Concomitant]
     Active Substance: LOXOPROFEN SODIUM
  8. NIFEDIPINE. [Concomitant]
     Active Substance: NIFEDIPINE

REACTIONS (2)
  - Fall [Recovered/Resolved]
  - Femoral neck fracture [Not Recovered/Not Resolved]

NARRATIVE: CASE EVENT DATE: 20160615
